FAERS Safety Report 5148688-4 (Version None)
Quarter: 2006Q4

REPORT INFORMATION
  Report Type: 
  Country: None (occurrence: None)
  Receive Date: 20060918
  Receipt Date: 20060412
  Transmission Date: 20070319
  Serious: Yes (Other)
  Sender: FDA-Public Use
  Company Number: US-JNJFOC-20060403287

PATIENT
  Age: 24 Year
  Sex: Female
  Weight: 77.1115 kg

DRUGS (10)
  1. TOPAMAX [Suspect]
     Indication: CONVULSION
     Dosage: 200 MG, 2 IN 1 DAY, ORAL
     Route: 048
  2. AXERT [Concomitant]
  3. TEGRETOL [Concomitant]
  4. INDERAL [Concomitant]
  5. ZOLOFT [Concomitant]
  6. LORATADINE [Concomitant]
  7. PROTONIX [Concomitant]
  8. ZELNORM [Concomitant]
  9. BIRTH CONTROL (ORAL CONTRACEPTIVE NOS) [Concomitant]
  10. GLUCAGON [Concomitant]

REACTIONS (5)
  - DECREASED APPETITE [None]
  - DEHYDRATION [None]
  - DRUG WITHDRAWAL CONVULSIONS [None]
  - GASTRIC DISORDER [None]
  - HEART RATE INCREASED [None]
